FAERS Safety Report 22075821 (Version 1)
Quarter: 2023Q1

REPORT INFORMATION
  Report Type: Spontaneous
  Country: IT (occurrence: IT)
  Receive Date: 20230308
  Receipt Date: 20230308
  Transmission Date: 20230418
  Serious: Yes (Death, Hospitalization, Other)
  Sender: FDA-Public Use
  Company Number: IT-JAZZ PHARMACEUTICALS-2023-IT-004653

PATIENT
  Age: 76 Year
  Sex: Female
  Weight: 53 kg

DRUGS (1)
  1. VYXEOS [Suspect]
     Active Substance: CYTARABINE\DAUNORUBICIN
     Indication: Acute myeloid leukaemia
     Dosage: DAUNORUBICINA 44 MG/MQ E CITARABINA 100 MG/MQ GIORNI 1- 3 - 5 (PRIMA INDUZIONE)
     Route: 042
     Dates: start: 20230213, end: 20230217

REACTIONS (3)
  - Cardio-respiratory arrest [Fatal]
  - Febrile neutropenia [Not Recovered/Not Resolved]
  - Constipation [Not Recovered/Not Resolved]

NARRATIVE: CASE EVENT DATE: 20230217
